FAERS Safety Report 5044289-7 (Version None)
Quarter: 2006Q3

REPORT INFORMATION
  Report Type: 
  Country: None (occurrence: None)
  Receive Date: 20060706
  Receipt Date: 20060626
  Transmission Date: 20061208
  Serious: Yes (Hospitalization)
  Sender: FDA-Public Use
  Company Number: PHFR2006GB02126

PATIENT
  Age: 76 Year
  Sex: Female

DRUGS (8)
  1. ASPIRIN [Suspect]
     Indication: CARDIOVASCULAR DISORDER
     Dosage: 150 MG, QD
  2. ACETAMINOPHEN W/ CODEINE [Concomitant]
     Indication: OSTEOARTHRITIS
     Dosage: UNK, QD
     Route: 048
  3. FUROSEMIDE [Concomitant]
     Indication: MYOCARDIAL ISCHAEMIA
     Dosage: 40 MBQ, QD
     Route: 048
  4. METFORMIN [Concomitant]
     Indication: DIABETES MELLITUS NON-INSULIN-DEPENDENT
     Dosage: 500 MG, TID
     Route: 048
  5. VOLTAREN [Suspect]
     Dosage: UNK, TID
  6. NOVOMIX [Concomitant]
     Route: 058
  7. SPIRONOLACTONE [Concomitant]
     Indication: MYOCARDIAL ISCHAEMIA
     Dosage: 25 MG, QD
     Route: 048
     Dates: start: 20060516
  8. VITAMIN B-12 [Concomitant]
     Dosage: UNK, Q3MO
     Route: 051

REACTIONS (6)
  - BLOOD POTASSIUM INCREASED [None]
  - DYSPNOEA [None]
  - FALL [None]
  - GASTRIC ULCER [None]
  - HAEMOGLOBIN DECREASED [None]
  - LETHARGY [None]
